FAERS Safety Report 24669249 (Version 1)
Quarter: 2024Q4

REPORT INFORMATION
  Report Type: Spontaneous
  Country: JP (occurrence: JP)
  Receive Date: 20241127
  Receipt Date: 20241127
  Transmission Date: 20250115
  Serious: Yes (Hospitalization)
  Sender: STRIDES
  Company Number: None

PATIENT
  Age: 82 Year
  Sex: Male

DRUGS (1)
  1. PREDNISOLONE [Suspect]
     Active Substance: PREDNISOLONE
     Indication: Organising pneumonia
     Dosage: 8 MILLIGRAM, QD
     Route: 065

REACTIONS (10)
  - Cardiomegaly [Unknown]
  - Renal impairment [Unknown]
  - Thrombocytopenia [Unknown]
  - Anaemia [Unknown]
  - Vocal cord paralysis [None]
  - Paralysis recurrent laryngeal nerve [None]
  - Aortic pseudoaneurysm [None]
  - Otitis media acute [Recovered/Resolved]
  - Pseudoaneurysm infection [None]
  - Klebsiella pneumoniae invasive syndrome [Recovered/Resolved]
